FAERS Safety Report 14567158 (Version 1)
Quarter: 2018Q1

REPORT INFORMATION
  Report Type: Spontaneous
  Country: US (occurrence: US)
  Receive Date: 20180222
  Receipt Date: 20180222
  Transmission Date: 20180509
  Serious: Yes (Other)
  Sender: FDA-Public Use
  Company Number: None

PATIENT
  Age: 58 Year
  Sex: Female

DRUGS (1)
  1. IMATINIB 400MG TEVA [Suspect]
     Active Substance: IMATINIB
     Indication: BREAST CANCER
     Route: 048
     Dates: start: 20170117

REACTIONS (3)
  - Dry eye [None]
  - Eye pruritus [None]
  - Ocular hyperaemia [None]

NARRATIVE: CASE EVENT DATE: 20170117
